FAERS Safety Report 21535500 (Version 1)
Quarter: 2022Q4

REPORT INFORMATION
  Report Type: Spontaneous
  Country: US (occurrence: None)
  Receive Date: 20221031
  Receipt Date: 20221031
  Transmission Date: 20230112
  Serious: Yes (Other)
  Sender: FDA-Public Use
  Company Number: None

PATIENT
  Age: 35 Year
  Sex: 0
  Weight: 82.8 kg

DRUGS (1)
  1. RYBELSUS [Suspect]
     Active Substance: SEMAGLUTIDE

REACTIONS (5)
  - Liver function test increased [None]
  - Nausea [None]
  - Vomiting [None]
  - Headache [None]
  - Feeding disorder [None]

NARRATIVE: CASE EVENT DATE: 20210325
